FAERS Safety Report 12998886 (Version 1)
Quarter: 2016Q4

REPORT INFORMATION
  Report Type: Spontaneous
  Country: US (occurrence: US)
  Receive Date: 20161205
  Receipt Date: 20161205
  Transmission Date: 20170207
  Serious: Yes (Other)
  Sender: FDA-Public Use
  Company Number: US-CELGENEUS-USA-2016116913

PATIENT
  Age: 94 Year
  Sex: Female
  Weight: 63.11 kg

DRUGS (18)
  1. POMALYST [Suspect]
     Active Substance: POMALIDOMIDE
     Indication: PLASMA CELL MYELOMA
     Dosage: 2MG
     Route: 048
     Dates: start: 201507
  2. POMALYST [Suspect]
     Active Substance: POMALIDOMIDE
     Dosage: 4MG
     Route: 048
     Dates: start: 20160701
  3. DIOVAN [Concomitant]
     Active Substance: VALSARTAN
     Indication: HYPERTENSION
     Dosage: 320-12.5MG
     Route: 048
     Dates: start: 20160627
  4. POMALYST [Suspect]
     Active Substance: POMALIDOMIDE
     Dosage: 1-3MG
     Route: 048
     Dates: start: 201508
  5. ASPIRIN. [Concomitant]
     Active Substance: ASPIRIN
     Indication: PROPHYLAXIS
     Dosage: 81MG
     Route: 048
     Dates: start: 20160627
  6. LASIX [Concomitant]
     Active Substance: FUROSEMIDE
     Indication: FLUID RETENTION
     Dosage: 20MG
     Route: 048
     Dates: start: 20160627
  7. TYLENOL [Concomitant]
     Active Substance: ACETAMINOPHEN
     Indication: PAIN
     Dosage: 650MG
     Route: 048
     Dates: start: 20160627
  8. GABAPENTIN. [Concomitant]
     Active Substance: GABAPENTIN
     Indication: PAIN
     Dosage: 300MG
     Route: 048
     Dates: start: 20160627
  9. KLOR-CON M10 [Concomitant]
     Active Substance: POTASSIUM CHLORIDE
     Indication: PRODUCT USED FOR UNKNOWN INDICATION
     Dosage: 10MEQ
     Route: 048
     Dates: start: 20160627
  10. VISTARIL [Concomitant]
     Active Substance: HYDROXYZINE PAMOATE
     Indication: HYPERTENSION
     Dosage: 25MG
     Route: 048
     Dates: start: 20160627
  11. FELODIPINE. [Concomitant]
     Active Substance: FELODIPINE
     Indication: HYPERTENSION
     Dosage: 2.5MG
     Route: 048
     Dates: start: 20160627
  12. PRILOSEC [Concomitant]
     Active Substance: OMEPRAZOLE MAGNESIUM
     Indication: GASTROOESOPHAGEAL REFLUX DISEASE
     Dosage: 20MG
     Route: 048
     Dates: start: 20160627
  13. OXYCONTIN [Concomitant]
     Active Substance: OXYCODONE HYDROCHLORIDE
     Indication: PAIN
     Dosage: 20MG
     Route: 048
     Dates: start: 20160627
  14. POMALYST [Suspect]
     Active Substance: POMALIDOMIDE
     Dosage: 4MG
     Route: 048
     Dates: start: 201608
  15. LEVOTHYROXINE SODIUM. [Concomitant]
     Active Substance: LEVOTHYROXINE SODIUM
     Indication: HYPOTHYROIDISM
     Dosage: 50MCG
     Route: 048
     Dates: start: 20160627
  16. ACYCLOVIR. [Concomitant]
     Active Substance: ACYCLOVIR
     Indication: ANTIVIRAL PROPHYLAXIS
     Dosage: 400MG
     Route: 048
     Dates: start: 20160627
  17. COLACE [Concomitant]
     Active Substance: DOCUSATE SODIUM
     Indication: CONSTIPATION
     Dosage: 50MG
     Route: 048
     Dates: start: 20160627
  18. DECADRON [Concomitant]
     Active Substance: DEXAMETHASONE
     Indication: PRODUCT USED FOR UNKNOWN INDICATION
     Dosage: 40MG
     Route: 048
     Dates: start: 20160627

REACTIONS (1)
  - Mouth swelling [Unknown]

NARRATIVE: CASE EVENT DATE: 20161119
